FAERS Safety Report 4527645-2 (Version None)
Quarter: 2004Q4

REPORT INFORMATION
  Report Type: 
  Country: None (occurrence: None)
  Receive Date: 20041215
  Receipt Date: 20041028
  Transmission Date: 20050328
  Serious: Yes (Hospitalization)
  Sender: FDA-Public Use
  Company Number: US-AMGEN-US097729

PATIENT
  Sex: Male

DRUGS (8)
  1. ENBREL [Suspect]
     Indication: RHEUMATOID ARTHRITIS
     Route: 058
     Dates: start: 20021111, end: 20031119
  2. CELLCEPT [Suspect]
     Route: 048
     Dates: start: 20040714
  3. PREDNISONE [Concomitant]
     Route: 048
     Dates: start: 20040630
  4. IMURAN [Concomitant]
     Route: 048
     Dates: start: 20040212, end: 20040714
  5. ACETAMINOPHEN [Concomitant]
  6. FLONASE [Concomitant]
  7. ANTIBIOTIC NOS [Concomitant]
  8. DOCUSATE [Concomitant]
     Route: 048

REACTIONS (7)
  - CONDITION AGGRAVATED [None]
  - CUTANEOUS VASCULITIS [None]
  - FAILURE TO THRIVE [None]
  - IMPAIRED HEALING [None]
  - MENTAL STATUS CHANGES [None]
  - PAIN [None]
  - SYSTEMIC LUPUS ERYTHEMATOSUS [None]
